FAERS Safety Report 15279090 (Version 1)
Quarter: 2018Q3

REPORT INFORMATION
  Report Type: Spontaneous
  Country: US (occurrence: US)
  Receive Date: 20180815
  Receipt Date: 20180815
  Transmission Date: 20181010
  Serious: Yes (Other)
  Sender: FDA-Public Use
  Company Number: US-TEVA-2018-US-942101

PATIENT
  Sex: Female

DRUGS (1)
  1. OXYBUTYNIN. [Suspect]
     Active Substance: OXYBUTYNIN CHLORIDE
     Indication: INCONTINENCE
     Dosage: 3.9 MILLIGRAM DAILY;
     Route: 062

REACTIONS (3)
  - Wrong technique in product usage process [Unknown]
  - Urinary retention [Recovered/Resolved]
  - Dysuria [Unknown]
